FAERS Safety Report 4465298-2 (Version None)
Quarter: 2004Q3

REPORT INFORMATION
  Report Type: 
  Country: None (occurrence: None)
  Receive Date: 20040929
  Receipt Date: 20040916
  Transmission Date: 20050211
  Serious: Yes (Other)
  Sender: FDA-Public Use
  Company Number: 2004067349

PATIENT
  Age: 75 Year
  Sex: Male
  Weight: 65.7716 kg

DRUGS (1)
  1. LIPITOR [Suspect]
     Indication: ILL-DEFINED DISORDER
     Dosage: 10 MG (10 MG, 1 IN 1 D), ORAL
     Route: 048
     Dates: start: 20040701, end: 20040101

REACTIONS (3)
  - BONE PAIN [None]
  - FATIGUE [None]
  - WEIGHT DECREASED [None]
